FAERS Safety Report 9611950 (Version 2)
Quarter: 2013Q4

REPORT INFORMATION
  Report Type: Spontaneous
  Country: JP (occurrence: JP)
  Receive Date: 20131010
  Receipt Date: 20131113
  Transmission Date: 20140711
  Serious: Yes (Hospitalization)
  Sender: FDA-Public Use
  Company Number: JP-JNJFOC-20131003922

PATIENT
  Age: 36 Year
  Sex: Male

DRUGS (14)
  1. FINIBAX [Suspect]
     Indication: POSTOPERATIVE WOUND INFECTION
     Dosage: 1 G THREE TIMES DAILY
     Route: 041
     Dates: start: 20130822, end: 20130828
  2. FINIBAX [Suspect]
     Indication: WOUND INFECTION
     Dosage: 1 G THREE TIMES DAILY
     Route: 041
     Dates: start: 20130822, end: 20130828
  3. CEFXONE [Suspect]
     Indication: POSTOPERATIVE WOUND INFECTION
     Route: 065
     Dates: start: 20130829, end: 20130901
  4. CEFXONE [Suspect]
     Indication: WOUND INFECTION
     Route: 065
     Dates: start: 20130829, end: 20130901
  5. RASENAZOLIN [Concomitant]
     Route: 065
     Dates: start: 20130816, end: 20130821
  6. LOXONIN [Concomitant]
     Route: 048
     Dates: start: 20130817
  7. MUCOSTA [Concomitant]
     Route: 048
     Dates: start: 20130817
  8. BIOFERMIN [Concomitant]
     Route: 048
     Dates: start: 20130817
  9. BARAMYCIN [Concomitant]
     Route: 065
     Dates: start: 20130817
  10. VANCOMYCIN [Concomitant]
     Indication: POSTOPERATIVE WOUND INFECTION
     Route: 065
     Dates: start: 20130822, end: 20130827
  11. VANCOMYCIN [Concomitant]
     Indication: WOUND INFECTION
     Route: 065
     Dates: start: 20130822, end: 20130827
  12. DECADRON [Concomitant]
     Indication: POSTOPERATIVE WOUND INFECTION
     Route: 065
     Dates: start: 20130822, end: 20130825
  13. DECADRON [Concomitant]
     Indication: WOUND INFECTION
     Route: 065
     Dates: start: 20130822, end: 20130825
  14. OMEPRAZOLE [Concomitant]
     Indication: PROPHYLAXIS
     Route: 065
     Dates: start: 20130822, end: 20130825

REACTIONS (1)
  - Drug-induced liver injury [Recovering/Resolving]
